FAERS Safety Report 6615353-3 (Version None)
Quarter: 2010Q1

REPORT INFORMATION
  Report Type: 
  Country: None (occurrence: None)
  Receive Date: 20100305
  Receipt Date: 20090814
  Transmission Date: 20100710
  Serious: No
  Sender: FDA-Public Use
  Company Number: A0802305A

PATIENT
  Age: 61 Year
  Sex: Female

DRUGS (6)
  1. REQUIP [Suspect]
     Indication: RESTLESS LEGS SYNDROME
     Dosage: .5MG PER DAY
     Route: 048
     Dates: start: 20090810
  2. CLARITIN [Concomitant]
  3. NASONEX [Concomitant]
  4. LEXAPRO [Concomitant]
  5. AMPHETAMINE SULFATE [Concomitant]
  6. SINGULAIR [Concomitant]

REACTIONS (5)
  - DIZZINESS [None]
  - EXPIRED DRUG ADMINISTERED [None]
  - HEADACHE [None]
  - INSOMNIA [None]
  - NAUSEA [None]
